FAERS Safety Report 14211230 (Version 6)
Quarter: 2019Q3

REPORT INFORMATION
  Report Type: Spontaneous
  Country: US (occurrence: US)
  Receive Date: 20171121
  Receipt Date: 20190913
  Transmission Date: 20191004
  Serious: Yes (Other)
  Sender: FDA-Public Use
  Company Number: US-PFIZER INC-2017495192

PATIENT
  Age: 24 Year
  Sex: Male
  Weight: 144.2 kg

DRUGS (14)
  1. TESTOSTERONE ENANTHATE. [Concomitant]
     Active Substance: TESTOSTERONE ENANTHATE
     Indication: HYPOPITUITARISM
     Dosage: 1 ML, WEEKLY (OF 1,000 MG/5 ML )
  2. LEVOTHYROXINE SODIUM. [Concomitant]
     Active Substance: LEVOTHYROXINE SODIUM
     Indication: HYPOTHYROIDISM
     Dosage: 1350 UG, WEEKLY (150MCG 9 TABS WEEKLY/ 5 DAYS A WEEK, 2 TABS ON SAT AND SUN)
     Route: 048
  3. TESTOSTERONE ENANTHATE. [Concomitant]
     Active Substance: TESTOSTERONE ENANTHATE
     Indication: HYPOGONADISM
     Dosage: 250 MG, Q2 WEEKS
     Route: 030
  4. HYDROCORTISONE. [Concomitant]
     Active Substance: HYDROCORTISONE
     Indication: HYPOPITUITARISM
     Dosage: 10 MG, AS NEEDED
     Route: 048
  5. SIGNIFOR LAR [Concomitant]
     Active Substance: PASIREOTIDE
     Dosage: 60 MG, UNK
  6. AXIRON [Concomitant]
     Active Substance: TESTOSTERONE
     Indication: HYPOGONADISM
     Dosage: UNK
  7. SOMAVERT [Suspect]
     Active Substance: PEGVISOMANT
     Indication: ACROMEGALY
     Dosage: 20 MG, DAILY (20 DAILY)
     Dates: start: 20160530
  8. SOMAVERT [Suspect]
     Active Substance: PEGVISOMANT
     Dosage: 10 MG, WEEKLY
  9. LEVOTHYROXINE SODIUM. [Concomitant]
     Active Substance: LEVOTHYROXINE SODIUM
     Indication: HYPOPITUITARISM
     Dosage: 150 MCG (1 TAB M-F, 2 TABS ON SATURDAY AND SUNDAY)
     Route: 048
     Dates: start: 201702
  10. SOMAVERT [Suspect]
     Active Substance: PEGVISOMANT
     Dosage: 30 MG, DAILY
     Dates: start: 201811
  11. SIGNIFOR [Suspect]
     Active Substance: PASIREOTIDE
     Dosage: UNK
     Dates: start: 20170330
  12. TESTOSTERONE ENANTHATE. [Concomitant]
     Active Substance: TESTOSTERONE ENANTHATE
     Dosage: 0.75 MG, WEEKLY (OF 200MG/ML )
  13. SOMAVERT [Suspect]
     Active Substance: PEGVISOMANT
     Dosage: 30 MG, WEEKLY
  14. SIGNIFOR LAR [Concomitant]
     Active Substance: PASIREOTIDE
     Indication: ACROMEGALY
     Dosage: 40 MG, UNK
     Dates: start: 201705

REACTIONS (12)
  - Vitamin D deficiency [Recovered/Resolved]
  - Blood growth hormone increased [Unknown]
  - Diarrhoea [Unknown]
  - Arthropathy [Unknown]
  - Acanthosis nigricans [Unknown]
  - Off label use [Unknown]
  - Visual field defect [Unknown]
  - Visual impairment [Unknown]
  - Vision blurred [Unknown]
  - Gynaecomastia [Unknown]
  - Nasal congestion [Unknown]
  - Neoplasm progression [Unknown]

NARRATIVE: CASE EVENT DATE: 201802
